FAERS Safety Report 13890752 (Version 2)
Quarter: 2017Q3

REPORT INFORMATION
  Report Type: Report from Study
  Country: US (occurrence: US)
  Receive Date: 20170822
  Receipt Date: 20170929
  Transmission Date: 20171127
  Serious: Yes (Death)
  Sender: FDA-Public Use
  Company Number: US-TAIHO ONCOLOGY INC-EU-2017-01128

PATIENT
  Sex: Male
  Weight: 85.35 kg

DRUGS (3)
  1. LONSURF [Suspect]
     Active Substance: TIPIRACIL HYDROCHLORIDE\TRIFLURIDINE
     Indication: RECTAL CANCER
     Dosage: LAST CYCLE STARTED ON 31JUL2017, CYCLE NUMBER UNKNOWN
     Route: 048
  2. XARELTO [Concomitant]
     Active Substance: RIVAROXABAN
     Dosage: NI
  3. MORPHINE [Concomitant]
     Active Substance: MORPHINE
     Dosage: NI

REACTIONS (1)
  - Disease progression [Fatal]

NARRATIVE: CASE EVENT DATE: 2017
